FAERS Safety Report 4860788-2 (Version None)
Quarter: 2005Q4

REPORT INFORMATION
  Report Type: 
  Country: None (occurrence: None)
  Receive Date: 20051220
  Receipt Date: 20051018
  Transmission Date: 20060501
  Serious: Yes (Hospitalization)
  Sender: FDA-Public Use
  Company Number: HQWYE122020OCT05

PATIENT
  Age: 46 Year
  Sex: Female

DRUGS (5)
  1. ENBREL [Suspect]
     Indication: RHEUMATOID ARTHRITIS
     Dosage: 25 MG/VIAL, UNKNOWN
     Route: 058
     Dates: start: 20050201
  2. DICLOFENAC [Suspect]
     Route: 048
     Dates: start: 19990101, end: 20051001
  3. METHOTREXATE [Concomitant]
     Route: 048
     Dates: end: 20051001
  4. SULFASALAZINE [Concomitant]
     Indication: RHEUMATOID ARTHRITIS
     Dosage: UNKNOWN, TABLET
     Route: 048
     Dates: start: 20050801, end: 20051001
  5. PREDNISONE TAB [Concomitant]
     Indication: RHEUMATOID ARTHRITIS
     Dosage: UNKNOWN, TABLET
     Route: 048
     Dates: end: 20051001

REACTIONS (3)
  - CONDITION AGGRAVATED [None]
  - HEPATITIS [None]
  - RHEUMATOID ARTHRITIS [None]
